FAERS Safety Report 16177421 (Version 1)
Quarter: 2019Q2

REPORT INFORMATION
  Report Type: Spontaneous
  Country: IN (occurrence: IN)
  Receive Date: 20190410
  Receipt Date: 20190410
  Transmission Date: 20190711
  Serious: Yes (Other)
  Sender: FDA-Public Use
  Company Number: IN-ROCHE-2256427

PATIENT

DRUGS (1)
  1. AVASTIN [Suspect]
     Active Substance: BEVACIZUMAB
     Indication: AGE-RELATED MACULAR DEGENERATION
     Route: 065

REACTIONS (6)
  - Eye pain [Unknown]
  - Blindness [Not Recovered/Not Resolved]
  - Eye swelling [Unknown]
  - Off label use [Unknown]
  - Intentional product use issue [Unknown]
  - Lacrimation increased [Unknown]
